FAERS Safety Report 10400948 (Version 1)
Quarter: 2014Q3

REPORT INFORMATION
  Report Type: Spontaneous
  Country: CN (occurrence: CN)
  Receive Date: 20140821
  Receipt Date: 20140821
  Transmission Date: 20150326
  Serious: Yes (Death, Life-Threatening)
  Sender: FDA-Public Use
  Company Number: CN-BAXTER-2014BAX048453

PATIENT
  Age: 62 Year
  Sex: Male
  Weight: 60 kg

DRUGS (8)
  1. BUMINATE 25% [Suspect]
     Active Substance: ALBUMIN (HUMAN)
     Indication: HYPOPROTEINAEMIA
     Route: 041
     Dates: start: 20140102, end: 20140102
  2. IRINOTECAN [Suspect]
     Active Substance: IRINOTECAN
     Dosage: DAY 8
     Route: 065
  3. FLUOROURACIL. [Suspect]
     Active Substance: FLUOROURACIL
     Indication: PRODUCT USED FOR UNKNOWN INDICATION
     Dosage: CIV
     Route: 042
  4. IRINOTECAN [Suspect]
     Active Substance: IRINOTECAN
     Indication: PRODUCT USED FOR UNKNOWN INDICATION
     Dosage: DAY 1
     Route: 065
  5. CETUXIMAB [Suspect]
     Active Substance: CETUXIMAB
     Indication: PRODUCT USED FOR UNKNOWN INDICATION
     Route: 065
     Dates: start: 20131225
  6. CALCIUM FOLINATE [Suspect]
     Active Substance: LEUCOVORIN CALCIUM
     Indication: PRODUCT USED FOR UNKNOWN INDICATION
     Dosage: DAY 1
     Route: 065
  7. CALCIUM FOLINATE [Suspect]
     Active Substance: LEUCOVORIN CALCIUM
     Dosage: DAY 2
     Route: 065
  8. CETUXIMAB [Suspect]
     Active Substance: CETUXIMAB
     Route: 065

REACTIONS (10)
  - Electrocardiogram ST segment abnormal [Unknown]
  - Productive cough [Unknown]
  - Pyrexia [Not Recovered/Not Resolved]
  - Cough [Unknown]
  - Chills [Not Recovered/Not Resolved]
  - Death [Fatal]
  - Tachycardia [Not Recovered/Not Resolved]
  - Dyspnoea [Not Recovered/Not Resolved]
  - Cardiac discomfort [Not Recovered/Not Resolved]
  - Sputum retention [Unknown]

NARRATIVE: CASE EVENT DATE: 20140102
